FAERS Safety Report 10047611 (Version 1)
Quarter: 2014Q1

REPORT INFORMATION
  Report Type: Spontaneous
  Country: US (occurrence: None)
  Receive Date: 20140328
  Receipt Date: 20140328
  Transmission Date: 20141002
  Serious: No
  Sender: FDA-Public Use
  Company Number: None

PATIENT
  Age: 35 Year
  Sex: Female

DRUGS (1)
  1. CLOMIPRAMINE [Suspect]
     Dates: start: 20140326, end: 20140326

REACTIONS (7)
  - Dizziness [None]
  - Vision blurred [None]
  - Rash [None]
  - Mydriasis [None]
  - Anxiety [None]
  - Drug dispensing error [None]
  - Wrong drug administered [None]
